FAERS Safety Report 6779505-4 (Version None)
Quarter: 2010Q2

REPORT INFORMATION
  Report Type: 
  Country: None (occurrence: None)
  Receive Date: 20100618
  Receipt Date: 20100609
  Transmission Date: 20101027
  Serious: Yes (Hospitalization, Other)
  Sender: FDA-Public Use
  Company Number: US-ELI_LILLY_AND_COMPANY-US201006003558

PATIENT
  Age: 33 Year
  Sex: Female

DRUGS (2)
  1. BYETTA [Suspect]
     Dosage: 5 UG, UNKNOWN
     Dates: end: 20100101
  2. METFORMIN [Concomitant]
     Indication: TYPE 2 DIABETES MELLITUS

REACTIONS (4)
  - BLOOD TRIGLYCERIDES INCREASED [None]
  - PANCREATITIS [None]
  - STRESS [None]
  - WEIGHT DECREASED [None]
